FAERS Safety Report 18887863 (Version 12)
Quarter: 2022Q1

REPORT INFORMATION
  Report Type: Report from Study
  Country: CA (occurrence: CA)
  Receive Date: 20210212
  Receipt Date: 20220316
  Transmission Date: 20220423
  Serious: Yes (Hospitalization, Other)
  Sender: FDA-Public Use
  Company Number: CA-TAKEDA-CA202010037

PATIENT
  Age: 60 Year
  Sex: Female
  Weight: 40.816 kg

DRUGS (23)
  1. TEDUGLUTIDE [Suspect]
     Active Substance: TEDUGLUTIDE
     Indication: Short-bowel syndrome
     Dosage: 2.48 MILLIGRAM, QD
     Route: 065
     Dates: start: 20200306
  2. TEDUGLUTIDE [Suspect]
     Active Substance: TEDUGLUTIDE
     Indication: Short-bowel syndrome
     Dosage: 2.48 MILLIGRAM, QD
     Route: 065
     Dates: start: 20200306
  3. TEDUGLUTIDE [Suspect]
     Active Substance: TEDUGLUTIDE
     Indication: Short-bowel syndrome
     Dosage: 2.48 MILLIGRAM, QD
     Route: 065
     Dates: start: 20200306
  4. TEDUGLUTIDE [Suspect]
     Active Substance: TEDUGLUTIDE
     Indication: Short-bowel syndrome
     Dosage: 2.48 MILLIGRAM, QD
     Route: 065
     Dates: start: 20200306
  5. TEDUGLUTIDE [Suspect]
     Active Substance: TEDUGLUTIDE
     Dosage: 2.12 MILLIGRAM, QD
     Route: 065
     Dates: start: 20200306
  6. TEDUGLUTIDE [Suspect]
     Active Substance: TEDUGLUTIDE
     Dosage: 2.12 MILLIGRAM, QD
     Route: 065
     Dates: start: 20200306
  7. TEDUGLUTIDE [Suspect]
     Active Substance: TEDUGLUTIDE
     Dosage: 2.12 MILLIGRAM, QD
     Route: 065
     Dates: start: 20200306
  8. TEDUGLUTIDE [Suspect]
     Active Substance: TEDUGLUTIDE
     Dosage: 2.12 MILLIGRAM, QD
     Route: 065
     Dates: start: 20200306
  9. TEDUGLUTIDE [Suspect]
     Active Substance: TEDUGLUTIDE
     Dosage: 2.05 MILLIGRAM, QD
     Route: 065
     Dates: start: 20200306
  10. TEDUGLUTIDE [Suspect]
     Active Substance: TEDUGLUTIDE
     Dosage: 2.05 MILLIGRAM, QD
     Route: 065
     Dates: start: 20200306
  11. TEDUGLUTIDE [Suspect]
     Active Substance: TEDUGLUTIDE
     Dosage: 2.05 MILLIGRAM, QD
     Route: 065
     Dates: start: 20200306
  12. TEDUGLUTIDE [Suspect]
     Active Substance: TEDUGLUTIDE
     Dosage: 2.05 MILLIGRAM, QD
     Route: 065
     Dates: start: 20200306
  13. TEDUGLUTIDE [Suspect]
     Active Substance: TEDUGLUTIDE
     Dosage: 2.4 MILLIGRAM, QD
     Route: 058
     Dates: start: 20200306
  14. TEDUGLUTIDE [Suspect]
     Active Substance: TEDUGLUTIDE
     Dosage: 2.4 MILLIGRAM, QD
     Route: 058
     Dates: start: 20200306
  15. TEDUGLUTIDE [Suspect]
     Active Substance: TEDUGLUTIDE
     Dosage: 2.4 MILLIGRAM, QD
     Route: 058
     Dates: start: 20200306
  16. TEDUGLUTIDE [Suspect]
     Active Substance: TEDUGLUTIDE
     Dosage: 2.4 MILLIGRAM, QD
     Route: 058
     Dates: start: 20200306
  17. TEDUGLUTIDE [Suspect]
     Active Substance: TEDUGLUTIDE
     Dosage: 2.4 MILLIGRAM, QD
     Route: 065
     Dates: start: 20200306
  18. TEDUGLUTIDE [Suspect]
     Active Substance: TEDUGLUTIDE
     Dosage: 2.4 MILLIGRAM, QD
     Route: 065
     Dates: start: 20200306
  19. TEDUGLUTIDE [Suspect]
     Active Substance: TEDUGLUTIDE
     Dosage: 2.4 MILLIGRAM, QD
     Route: 065
     Dates: start: 20200306
  20. TEDUGLUTIDE [Suspect]
     Active Substance: TEDUGLUTIDE
     Dosage: 2.4 MILLIGRAM, QD
     Route: 065
     Dates: start: 20200306
  21. TPN [Concomitant]
     Active Substance: AMINO ACIDS\DEXTROSE\ELECTROLYTES NOS\SOYBEAN OIL
     Indication: Product used for unknown indication
     Dosage: 2000 MILLILITER, QD
     Route: 065
     Dates: start: 19990101, end: 20200306
  22. DILAUDID [Concomitant]
     Active Substance: HYDROMORPHONE HYDROCHLORIDE
     Indication: Pain
     Dosage: UNK
     Route: 065
  23. BUTYLSCOPOLAMINE BROMIDE [Concomitant]
     Active Substance: BUTYLSCOPOLAMINE BROMIDE
     Indication: Product used for unknown indication
     Dosage: 10 MILLIGRAM, QD
     Route: 065

REACTIONS (20)
  - Stoma site pain [Not Recovered/Not Resolved]
  - Hospitalisation [Recovering/Resolving]
  - Abdominal pain [Unknown]
  - Stoma site haemorrhage [Unknown]
  - Polycystic liver disease [Not Recovered/Not Resolved]
  - Weight decreased [Recovering/Resolving]
  - Weight increased [Recovering/Resolving]
  - Abnormal faeces [Recovering/Resolving]
  - Stoma complication [Not Recovered/Not Resolved]
  - Pain [Unknown]
  - Blood creatinine increased [Unknown]
  - Eating disorder [Not Recovered/Not Resolved]
  - Diarrhoea [Recovering/Resolving]
  - Muscle spasms [Unknown]
  - Polyp [Not Recovered/Not Resolved]
  - Stress [Not Recovered/Not Resolved]
  - Abdominal distension [Unknown]
  - Decreased appetite [Not Recovered/Not Resolved]
  - Flatulence [Not Recovered/Not Resolved]
  - Abdominal pain upper [Not Recovered/Not Resolved]

NARRATIVE: CASE EVENT DATE: 20200101
